FAERS Safety Report 11835648 (Version 1)
Quarter: 2015Q4

REPORT INFORMATION
  Report Type: Spontaneous
  Country: US (occurrence: None)
  Receive Date: 20151214
  Receipt Date: 20151214
  Transmission Date: 20160305
  Serious: Yes (Other)
  Sender: FDA-Public Use
  Company Number: None

PATIENT
  Age: 55 Year
  Sex: Female
  Weight: 62.6 kg

DRUGS (11)
  1. SULFAMETHOXAZOLE AND TRIMETHOPRIM [Suspect]
     Active Substance: SULFAMETHOXAZOLE\TRIMETHOPRIM
     Indication: INFECTION
     Route: 048
     Dates: start: 20151202, end: 20151202
  2. CALCIUM [Concomitant]
     Active Substance: CALCIUM
  3. VALERIAN ROOT W/MELATONIN [Concomitant]
  4. ADVIL [Concomitant]
     Active Substance: IBUPROFEN
  5. NASALCROM NASAL SPRAY [Concomitant]
  6. ZYRTEC OR ALLEGRA [Concomitant]
  7. CENTRUM SILVER [Concomitant]
     Active Substance: MINERALS\VITAMINS
  8. VIT K [Concomitant]
  9. FLAX/FISH OIL SUPPLEMENT [Concomitant]
  10. GARLIC SUPPLEMENT [Concomitant]
  11. MAGNESIUM [Concomitant]
     Active Substance: MAGNESIUM

REACTIONS (6)
  - Oropharyngeal pain [None]
  - Chest pain [None]
  - Urticaria [None]
  - Throat irritation [None]
  - Palpitations [None]
  - Pruritus [None]

NARRATIVE: CASE EVENT DATE: 20151209
